FAERS Safety Report 6286639-X (Version None)
Quarter: 2009Q3

REPORT INFORMATION
  Report Type: 
  Country: None (occurrence: None)
  Receive Date: 20090728
  Receipt Date: 20090717
  Transmission Date: 20100115
  Serious: Yes (Other)
  Sender: FDA-Public Use
  Company Number: PHHY2009GR19254

PATIENT
  Age: 70 Year
  Sex: Male

DRUGS (6)
  1. EXELON [Suspect]
     Dosage: 4.6 MG, QD
     Route: 062
     Dates: start: 20090210, end: 20090213
  2. SEROXAT ^SMITHKLINE BEECHAM^ [Suspect]
     Dosage: 2MG/ML, 1SPOONFUL DAILY
     Route: 048
     Dates: start: 20090210, end: 20090213
  3. INSULIN ISOPHANE, HUMAN BIOSYNTHETIC [Concomitant]
     Dosage: 1 DF, 1,1, DAYS
  4. MEVACOR [Concomitant]
     Dosage: 20 MG, 1,1, DAYS
     Route: 048
  5. AGGRENOX [Concomitant]
     Dosage: 1 DF, 1,1, DAYS
  6. SIMVASTATIN [Concomitant]
     Dosage: 20 MG, 1,1, DAYS
     Route: 048

REACTIONS (6)
  - ASTHENIA [None]
  - DIZZINESS [None]
  - GAIT DISTURBANCE [None]
  - HEADACHE [None]
  - HYPOTENSION [None]
  - SOMNOLENCE [None]
